FAERS Safety Report 9969556 (Version 2)
Quarter: 2014Q3

REPORT INFORMATION
  Report Type: Spontaneous
  Country: AT (occurrence: AT)
  Receive Date: 20140306
  Receipt Date: 20140915
  Transmission Date: 20150326
  Serious: Yes (Hospitalization, Other)
  Sender: FDA-Public Use
  Company Number: AT-ASTRAZENECA-2014SE13497

PATIENT
  Age: 71 Year
  Sex: Female
  Weight: 67.7 kg

DRUGS (12)
  1. SEROQUEL [Interacting]
     Active Substance: QUETIAPINE FUMARATE
     Route: 048
     Dates: start: 20140114, end: 20140128
  2. SAROTEN [Interacting]
     Active Substance: AMITRIPTYLINE
     Route: 065
     Dates: start: 20140117, end: 20140120
  3. SEROQUEL [Interacting]
     Active Substance: QUETIAPINE FUMARATE
     Route: 048
     Dates: start: 20140129, end: 20140131
  4. ASPIRIN. [Interacting]
     Active Substance: ASPIRIN
     Route: 065
     Dates: start: 20140107
  5. TEMESTA [Concomitant]
     Active Substance: LORAZEPAM
     Route: 065
     Dates: start: 20140127
  6. SAROTEN [Interacting]
     Active Substance: AMITRIPTYLINE
     Route: 065
     Dates: start: 20140121, end: 20140122
  7. SAROTEN [Interacting]
     Active Substance: AMITRIPTYLINE
     Route: 065
     Dates: start: 20140123, end: 20140131
  8. EFORTIL GTT [Concomitant]
     Dates: start: 20140123, end: 20140210
  9. INDERAL [Suspect]
     Active Substance: PROPRANOLOL HYDROCHLORIDE
     Route: 065
     Dates: start: 20140113, end: 20140128
  10. PANTOLOC [Interacting]
     Active Substance: PANTOPRAZOLE SODIUM
     Route: 065
  11. SEROQUEL [Interacting]
     Active Substance: QUETIAPINE FUMARATE
     Route: 048
     Dates: start: 20140201, end: 20140202
  12. MIRTAZAPIN [Concomitant]
     Active Substance: MIRTAZAPINE
     Dates: start: 20140208

REACTIONS (3)
  - Subileus [Recovered/Resolved]
  - Drug interaction [Unknown]
  - Labelled drug-drug interaction medication error [Unknown]

NARRATIVE: CASE EVENT DATE: 20140131
